FAERS Safety Report 6021148-4 (Version None)
Quarter: 2008Q4

REPORT INFORMATION
  Report Type: 
  Country: None (occurrence: None)
  Receive Date: 20081229
  Receipt Date: 20081222
  Transmission Date: 20090506
  Serious: Yes (Other)
  Sender: FDA-Public Use
  Company Number: CA-AVENTIS-200816224EU

PATIENT
  Age: 55 Year
  Sex: Male

DRUGS (1)
  1. NITROLINGUAL PUMPSPRAY [Suspect]
     Indication: ANGINA PECTORIS
     Dosage: DOSE: 1 SPRAY
     Route: 060

REACTIONS (2)
  - EXPIRED DRUG ADMINISTERED [None]
  - PETIT MAL EPILEPSY [None]
